FAERS Safety Report 20418148 (Version 2)
Quarter: 2022Q1

REPORT INFORMATION
  Report Type: Spontaneous
  Country: SE (occurrence: SE)
  Receive Date: 20220202
  Receipt Date: 20220208
  Transmission Date: 20220423
  Serious: Yes (Death, Life-Threatening, Hospitalization)
  Sender: FDA-Public Use
  Company Number: None

PATIENT
  Age: 70 Year
  Sex: Male

DRUGS (9)
  1. SULFASALAZINE [Suspect]
     Active Substance: SULFASALAZINE
     Indication: Psoriatic arthropathy
     Dosage: 2000 MG, QD
     Dates: start: 20211101, end: 20211124
  2. TRASTUZUMAB [Suspect]
     Active Substance: TRASTUZUMAB
     Indication: Salivary gland neoplasm
     Dosage: 6 MG / KG EVERY 3 WEEKS
     Route: 017
     Dates: start: 202101, end: 20211118
  3. MULTAQ [Suspect]
     Active Substance: DRONEDARONE
     Indication: Atrial fibrillation
     Dosage: 800 MG, QD
     Dates: start: 20211111, end: 202112
  4. METOPROLOL [Concomitant]
     Active Substance: METOPROLOL
     Dosage: 1 PROLONGED-RELEASE TABLET IF NEEDED
  5. SODIUM PICOSULFATE [Concomitant]
     Active Substance: SODIUM PICOSULFATE
     Dosage: 10 DROPS IF NEEDED
     Dates: start: 20210303
  6. ELIQUIS [Concomitant]
     Active Substance: APIXABAN
  7. POLYETHYLENE GLYCOLS [Concomitant]
     Active Substance: POLYETHYLENE GLYCOLS
     Dosage: IN A SACHET IF NECESSARY.
     Dates: start: 20210211
  8. ACETAMINOPHEN [Concomitant]
     Active Substance: ACETAMINOPHEN
     Dates: start: 20210426
  9. MOVICOL [Concomitant]
     Active Substance: POLYETHYLENE GLYCOL 3350\POTASSIUM CHLORIDE\SODIUM BICARBONATE\SODIUM CHLORIDE
     Dosage: IN A SACHET IF NECESSARY.
     Dates: start: 20210211

REACTIONS (1)
  - Pneumonitis [Fatal]

NARRATIVE: CASE EVENT DATE: 20211101
